FAERS Safety Report 9314099 (Version 1)
Quarter: 2013Q2

REPORT INFORMATION
  Report Type: Spontaneous
  Country: GB (occurrence: None)
  Receive Date: 20130521
  Receipt Date: 20130521
  Transmission Date: 20140414
  Serious: Yes (Other)
  Sender: FDA-Public Use
  Company Number: 2013/102

PATIENT
  Age: 1 Day
  Sex: Male
  Weight: 2.69 kg

DRUGS (6)
  1. OLANZAPINE [Suspect]
     Indication: BIPOLAR I DISORDER
  2. VALPROATE (NO PREF. NAME) 1 G OD [Concomitant]
  3. PROMETHAZINE (NO PREF. NAME) 25 MG QID [Concomitant]
  4. DIAZEPAM (NO PREF. NAME) 5 MG TID [Concomitant]
  5. LITHIUM (NO PREF. NAME) 400 MG BID [Concomitant]
  6. FOLIC ACID 5 MG OD [Concomitant]

REACTIONS (3)
  - Hypoglycaemia neonatal [None]
  - Foetal exposure during pregnancy [None]
  - Caesarean section [None]
